FAERS Safety Report 23276935 (Version 1)
Quarter: 2023Q4

REPORT INFORMATION
  Report Type: Spontaneous
  Country: AT (occurrence: AT)
  Receive Date: 20231208
  Receipt Date: 20231208
  Transmission Date: 20240110
  Serious: Yes (Other)
  Sender: FDA-Public Use
  Company Number: AT-AMGEN-AUTSP2023214124

PATIENT
  Age: 62 Year
  Sex: Male

DRUGS (1)
  1. NPLATE [Suspect]
     Active Substance: ROMIPLOSTIM
     Indication: Immune thrombocytopenia
     Dosage: UNK
     Route: 065
     Dates: start: 20130613

REACTIONS (6)
  - Loss of consciousness [Recovered/Resolved]
  - Pneumonia [Recovering/Resolving]
  - Angina pectoris [Recovering/Resolving]
  - Hypertension [Recovering/Resolving]
  - Syncope [Recovering/Resolving]
  - Wound haemorrhage [Recovered/Resolved]

NARRATIVE: CASE EVENT DATE: 20131212
